FAERS Safety Report 9118617 (Version 1)
Quarter: 2013Q1

REPORT INFORMATION
  Report Type: Report from Study
  Country: MX (occurrence: MX)
  Receive Date: 20130226
  Receipt Date: 20130226
  Transmission Date: 20140127
  Serious: Yes (Death, Other)
  Sender: FDA-Public Use
  Company Number: MX-BAYER-2013-024508

PATIENT
  Age: 36 Year
  Sex: Female
  Weight: 37 kg

DRUGS (1)
  1. INTERFERON BETA - 1B [Suspect]
     Indication: MULTIPLE SCLEROSIS

REACTIONS (3)
  - Septic shock [Fatal]
  - Abdominal sepsis [Unknown]
  - Decubitus ulcer [Unknown]
